FAERS Safety Report 9536293 (Version 1)
Quarter: 2013Q2

REPORT INFORMATION
  Report Type: Spontaneous
  Country: US (occurrence: None)
  Receive Date: 20130517
  Receipt Date: 20130517
  Transmission Date: 20140414
  Serious: Yes (Other)
  Sender: FDA-Public Use
  Company Number: 1000044410

PATIENT
  Age: 72 Year
  Sex: Female

DRUGS (3)
  1. VIBRYD [Suspect]
     Indication: DEPRESSION
     Dosage: 20MG, (20MG, 1 IN 1D) ORAL
     Route: 048
     Dates: start: 20130411
  2. XANAX [Concomitant]
  3. AMITRIPTYLINE (AMITRIPTYLINE) (AMITRIPTYLINE) [Concomitant]

REACTIONS (1)
  - Depression [None]
